FAERS Safety Report 4483377-0 (Version None)
Quarter: 2004Q4

REPORT INFORMATION
  Report Type: 
  Country: None (occurrence: None)
  Receive Date: 20041020
  Receipt Date: 20040930
  Transmission Date: 20050328
  Serious: Yes (Death)
  Sender: FDA-Public Use
  Company Number: AU_041008083

PATIENT
  Age: 84 Year
  Sex: Male

DRUGS (7)
  1. ZYPREXA [Suspect]
     Indication: DEMENTIA
     Dosage: 5 MG/ 1 DAY
     Dates: start: 20040601
  2. ZANTAC [Concomitant]
  3. CALTRATE (CALCIUM CARBONATE) [Concomitant]
  4. LISINOPRIL [Concomitant]
  5. LASIX [Concomitant]
  6. DICLOFENAC [Concomitant]
  7. TIMOLOL MALEATE [Concomitant]

REACTIONS (3)
  - ABNORMAL BEHAVIOUR [None]
  - BLOOD PROLACTIN INCREASED [None]
  - CEREBROVASCULAR ACCIDENT [None]
